FAERS Safety Report 5885944-6 (Version None)
Quarter: 2008Q3

REPORT INFORMATION
  Report Type: 
  Country: None (occurrence: None)
  Receive Date: 20080917
  Receipt Date: 20080910
  Transmission Date: 20090109
  Serious: Yes (Other)
  Sender: FDA-Public Use
  Company Number: US-BAYER-200615856BWH

PATIENT
  Age: 76 Year
  Sex: Female

DRUGS (3)
  1. NEXAVAR [Suspect]
     Indication: RENAL CELL CARCINOMA
     Dosage: TOTAL DAILY DOSE: 800 MG  UNIT DOSE: 200 MG
     Route: 048
     Dates: start: 20060901, end: 20060101
  2. NEXAVAR [Suspect]
     Route: 048
     Dates: start: 20080101
  3. NEXAVAR [Suspect]
     Dosage: AS USED: 600-400 MG  UNIT DOSE: 200 MG
     Route: 048
     Dates: start: 20080601, end: 20080819

REACTIONS (11)
  - ALOPECIA [None]
  - ASTHENIA [None]
  - BLISTER [None]
  - FATIGUE [None]
  - LOCALISED INFECTION [None]
  - NAUSEA [None]
  - RASH [None]
  - RASH GENERALISED [None]
  - RENAL CELL CARCINOMA [None]
  - VOMITING [None]
  - WEIGHT DECREASED [None]
